FAERS Safety Report 10901016 (Version 1)
Quarter: 2015Q1

REPORT INFORMATION
  Report Type: Spontaneous
  Country: GB (occurrence: GB)
  Receive Date: 20150310
  Receipt Date: 20150310
  Transmission Date: 20150721
  Serious: Yes (Other)
  Sender: FDA-Public Use
  Company Number: GB-APOTEX-2015AP007230

PATIENT
  Sex: Female

DRUGS (1)
  1. PAXIL [Suspect]
     Active Substance: PAROXETINE HYDROCHLORIDE
     Indication: AGORAPHOBIA
     Dosage: UNK
     Route: 065

REACTIONS (9)
  - Withdrawal syndrome [Unknown]
  - Adverse drug reaction [Unknown]
  - Headache [Unknown]
  - Drug dependence [Unknown]
  - Feeling abnormal [Unknown]
  - Depression [Unknown]
  - Aggression [Unknown]
  - Emotional distress [Unknown]
  - Nightmare [Unknown]
